FAERS Safety Report 24304281 (Version 1)
Quarter: 2024Q3

REPORT INFORMATION
  Report Type: Spontaneous
  Country: US (occurrence: US)
  Receive Date: 20240910
  Receipt Date: 20240910
  Transmission Date: 20241016
  Serious: Yes (Hospitalization, Other)
  Sender: TEVA
  Company Number: US-TEVA-VS-3205810

PATIENT
  Age: 63 Year
  Sex: Female

DRUGS (1)
  1. COPAXONE [Suspect]
     Active Substance: GLATIRAMER ACETATE
     Indication: Multiple sclerosis
     Dosage: FORM STRENGTH UNKNOWN
     Route: 065

REACTIONS (5)
  - Multiple sclerosis relapse [Unknown]
  - Hemiparesis [Unknown]
  - Visual impairment [Unknown]
  - Aphasia [Unknown]
  - Neuralgia [Unknown]
